FAERS Safety Report 6180891-7 (Version None)
Quarter: 2009Q2

REPORT INFORMATION
  Report Type: 
  Country: None (occurrence: None)
  Receive Date: 20090506
  Receipt Date: 20090317
  Transmission Date: 20091009
  Serious: No
  Sender: FDA-Public Use
  Company Number: US-BAYER-200910866BCC

PATIENT
  Age: 58 Year
  Sex: Male
  Weight: 102 kg

DRUGS (2)
  1. ALEVE [Suspect]
     Indication: INFLUENZA LIKE ILLNESS
     Dosage: TOTAL DAILY DOSE: 440 MG  UNIT DOSE: 220 MG
     Route: 048
     Dates: start: 20090317, end: 20090317
  2. ANDROGEL [Concomitant]
     Indication: DRUG USE FOR UNKNOWN INDICATION

REACTIONS (3)
  - DYSPEPSIA [None]
  - SWELLING [None]
  - URTICARIA [None]
